FAERS Safety Report 7829702-1 (Version None)
Quarter: 2011Q4

REPORT INFORMATION
  Report Type: 
  Country: None (occurrence: None)
  Receive Date: 20111021
  Receipt Date: 20111013
  Transmission Date: 20120403
  Serious: Yes (Death, Hospitalization)
  Sender: FDA-Public Use
  Company Number: US-VERTEX PHARMACEUTICALS INC.-AE-2011-002257

PATIENT
  Sex: Male
  Weight: 123.03 kg

DRUGS (8)
  1. ZIAC [Concomitant]
     Indication: BLOOD PRESSURE ABNORMAL
  2. INCIVEK [Suspect]
     Indication: HEPATITIS C
     Route: 048
     Dates: start: 20110916
  3. PEGASYS [Concomitant]
     Indication: HEPATITIS C
     Route: 058
     Dates: start: 20110916
  4. RIBAVIRIN [Concomitant]
     Indication: HEPATITIS C
     Route: 048
     Dates: start: 20110916
  5. LISINOPRIL [Concomitant]
     Indication: BLOOD PRESSURE ABNORMAL
  6. PROZAC [Concomitant]
  7. MULTI-VITAMIN [Concomitant]
     Indication: VITAMIN SUPPLEMENTATION
  8. NICODERM [Concomitant]
     Indication: SMOKING CESSATION THERAPY

REACTIONS (4)
  - RESPIRATORY ARREST [None]
  - PULSELESS ELECTRICAL ACTIVITY [None]
  - ANGIOEDEMA [None]
  - CONFUSIONAL STATE [None]
